FAERS Safety Report 7387310-3 (Version None)
Quarter: 2011Q1

REPORT INFORMATION
  Report Type: 
  Country: None (occurrence: None)
  Receive Date: 20110331
  Receipt Date: 20110318
  Transmission Date: 20110831
  Serious: Yes (Other)
  Sender: FDA-Public Use
  Company Number: GB-BAUSCH-2011BL001868

PATIENT
  Sex: Male

DRUGS (3)
  1. SIMVASTATIN [Concomitant]
  2. PREDNISOLONE [Suspect]
     Indication: PRODUCT USED FOR UNKNOWN INDICATION
     Dosage: DOSE UNIT:UNKNOWN
     Route: 065
     Dates: start: 20110314
  3. LORAZEPAM [Concomitant]

REACTIONS (1)
  - CONVULSION [None]
